FAERS Safety Report 15963100 (Version 1)
Quarter: 2019Q1

REPORT INFORMATION
  Report Type: Spontaneous
  Country: US (occurrence: US)
  Receive Date: 20190214
  Receipt Date: 20190214
  Transmission Date: 20190417
  Serious: Yes (Other)
  Sender: FDA-Public Use
  Company Number: US-009507513-1902USA004438

PATIENT
  Sex: Female
  Weight: 97.96 kg

DRUGS (3)
  1. NEXPLANON [Suspect]
     Active Substance: ETONOGESTREL
     Indication: CONTRACEPTION
     Dosage: 1 ROD
     Route: 059
     Dates: start: 201704, end: 20190208
  2. DEXMETHYLPHENIDATE HYDROCHLORIDE. [Concomitant]
     Active Substance: DEXMETHYLPHENIDATE HYDROCHLORIDE
  3. LEVOTHYROXINE SODIUM. [Concomitant]
     Active Substance: LEVOTHYROXINE SODIUM

REACTIONS (9)
  - Device dislocation [Recovered/Resolved]
  - Surgery [Recovered/Resolved]
  - Wound complication [Recovering/Resolving]
  - Weight increased [Recovering/Resolving]
  - Incision site pain [Recovering/Resolving]
  - Pain in extremity [Recovering/Resolving]
  - Incision site haemorrhage [Recovering/Resolving]
  - Dermatitis contact [Recovering/Resolving]
  - Complication of device removal [Recovered/Resolved]

NARRATIVE: CASE EVENT DATE: 201902
